FAERS Safety Report 18180703 (Version 3)
Quarter: 2020Q3

REPORT INFORMATION
  Report Type: Spontaneous
  Country: US (occurrence: US)
  Receive Date: 20200821
  Receipt Date: 20200909
  Transmission Date: 20201103
  Serious: Yes (Other)
  Sender: FDA-Public Use
  Company Number: US-UNITED THERAPEUTICS-UNT-2020-012392

PATIENT
  Sex: Female

DRUGS (4)
  1. REMODULIN [Suspect]
     Active Substance: TREPROSTINIL
     Dosage: 0.0365 ?G/KG, CONTINUING
     Route: 058
     Dates: start: 20200519
  2. ALYQ [Concomitant]
     Active Substance: TADALAFIL
     Indication: PRODUCT USED FOR UNKNOWN INDICATION
     Dosage: UNK
     Route: 065
  3. REMODULIN [Suspect]
     Active Substance: TREPROSTINIL
     Indication: PULMONARY ARTERIAL HYPERTENSION
     Dosage: UNK UNK, CONTINUING
     Route: 058
     Dates: start: 20191004
  4. REMODULIN [Suspect]
     Active Substance: TREPROSTINIL
     Dosage: 0.0391 ?G/KG, CONTINUING
     Route: 058

REACTIONS (9)
  - Infusion site erythema [Unknown]
  - Infusion site discharge [Unknown]
  - Off label use of device [Unknown]
  - Pulmonary hypertension [Unknown]
  - Device power source issue [Unknown]
  - Device data issue [Unknown]
  - Dyspnoea [Unknown]
  - Oxygen saturation decreased [Unknown]
  - Infusion site infection [Unknown]

NARRATIVE: CASE EVENT DATE: 2020
